FAERS Safety Report 8806631 (Version 2)
Quarter: 2012Q4

REPORT INFORMATION
  Report Type: Spontaneous
  Country: FI (occurrence: None)
  Receive Date: 20120919
  Receipt Date: 20120926
  Transmission Date: 20130627
  Serious: Yes (Other)
  Sender: FDA-Public Use
  Company Number: 2012AP002955

PATIENT
  Age: 59 Year
  Sex: Female

DRUGS (9)
  1. ALENDRONIC ACID (ALENDRONIC ACID) [Suspect]
     Indication: OSTEOPOROSIS
  2. ZOLEDRONIC ACID [Suspect]
     Indication: OSTEOPOROSIS
     Route: 042
  3. CLODRONIC ACID [Suspect]
     Indication: OSTEOPOROSIS
  4. DEXAMETHASONE (DEXAMETHASONE) [Suspect]
     Indication: MULTIPLE MYELOMA
  5. DEXAMETHASONE (DEXAMETHASONE) [Suspect]
     Indication: MULTIPLE MYELOMA
  6. THALIDOMIDE (THALIDOMIDE) [Concomitant]
  7. BORTEZOMIB (BORTEZOMIB) [Concomitant]
  8. MELPHALAN (MELPHALAN) [Concomitant]
  9. ALENDRONIC ACID (ALENDRONIC ACID) [Suspect]
     Indication: OSTEOPOROSIS

REACTIONS (2)
  - Osteonecrosis of jaw [None]
  - Fistula [None]
